FAERS Safety Report 4501874-6 (Version None)
Quarter: 2004Q4

REPORT INFORMATION
  Report Type: 
  Country: None (occurrence: None)
  Receive Date: 20041115
  Receipt Date: 20041115
  Transmission Date: 20050328
  Serious: Yes (Other)
  Sender: FDA-Public Use
  Company Number: None

PATIENT
  Sex: Male
  Weight: 275.2 kg

DRUGS (1)
  1. EZETIMIBE 10 MG [Suspect]
     Indication: BLOOD CHOLESTEROL
     Dosage: 1 TABLET QD ORAL
     Route: 048
     Dates: start: 20031103, end: 20040701

REACTIONS (2)
  - ABDOMINAL PAIN [None]
  - DYSPNOEA [None]
